FAERS Safety Report 7546604-9 (Version None)
Quarter: 2011Q2

REPORT INFORMATION
  Report Type: 
  Country: None (occurrence: None)
  Receive Date: 20110614
  Receipt Date: 20110531
  Transmission Date: 20111010
  Serious: Yes (Hospitalization)
  Sender: FDA-Public Use
  Company Number: BE-CELGENEUS-013-21880-10112787

PATIENT
  Sex: Male
  Weight: 74 kg

DRUGS (3)
  1. REVLIMID [Suspect]
     Indication: MULTIPLE MYELOMA
     Dosage: 15 MILLIGRAM
     Route: 048
     Dates: start: 20100712
  2. REVLIMID [Suspect]
     Dosage: 15 MILLIGRAM
     Route: 048
     Dates: start: 20101008, end: 20101028
  3. ENOXAPARIN SODIUM [Concomitant]
     Dosage: 40 MILLIGRAM
     Route: 058

REACTIONS (1)
  - ERYSIPELAS [None]
